FAERS Safety Report 20502456 (Version 1)
Quarter: 2022Q1

REPORT INFORMATION
  Report Type: Spontaneous
  Country: US (occurrence: None)
  Receive Date: 20220219
  Receipt Date: 20220219
  Transmission Date: 20220423
  Serious: Yes (Other)
  Sender: FDA-Public Use
  Company Number: None

PATIENT
  Age: 39 Year
  Sex: Female
  Weight: 65.25 kg

DRUGS (1)
  1. METOCLOPRAMIDE [Suspect]
     Active Substance: METOCLOPRAMIDE
     Indication: Suppressed lactation
     Dosage: FREQUENCY : DAILY;?
     Route: 048

REACTIONS (5)
  - Acute psychosis [None]
  - Hypersensitivity [None]
  - Loss of personal independence in daily activities [None]
  - Autism spectrum disorder [None]
  - Exposure via breast milk [None]

NARRATIVE: CASE EVENT DATE: 20120201
